FAERS Safety Report 10666885 (Version 2)
Quarter: 2015Q3

REPORT INFORMATION
  Report Type: Report from Study
  Country: BR (occurrence: BR)
  Receive Date: 20141222
  Receipt Date: 20150703
  Transmission Date: 20151125
  Serious: Yes (Hospitalization)
  Sender: FDA-Public Use
  Company Number: BR-BIOGENIDEC-2014BI135273

PATIENT
  Sex: Female

DRUGS (2)
  1. CYCLOBENZAPRINE HYDROCHLORIDE. [Concomitant]
     Active Substance: CYCLOBENZAPRINE HYDROCHLORIDE
  2. TYSABRI [Suspect]
     Active Substance: NATALIZUMAB
     Indication: MULTIPLE SCLEROSIS
     Route: 042
     Dates: start: 201403, end: 201409

REACTIONS (3)
  - Epilepsy [Unknown]
  - Cardio-respiratory arrest [Unknown]
  - Respiratory arrest [Unknown]

NARRATIVE: CASE EVENT DATE: 2014
